FAERS Safety Report 8396038-2 (Version None)
Quarter: 2012Q2

REPORT INFORMATION
  Report Type: 
  Country: None (occurrence: None)
  Receive Date: 20120530
  Receipt Date: 20120524
  Transmission Date: 20120825
  Serious: Yes (Death)
  Sender: FDA-Public Use
  Company Number: IE-PFIZER INC-2012111805

PATIENT
  Age: 78 Year
  Sex: Female

DRUGS (9)
  1. GLUCOPHAGE [Concomitant]
  2. ACETYLSALICYLIC ACID [Concomitant]
  3. TOVIAZ [Suspect]
     Indication: POLLAKIURIA
     Dosage: 4 MG, 1X/DAY
     Dates: start: 20091204
  4. LIPITOR [Concomitant]
  5. DIAMICRON [Concomitant]
  6. BUMETANIDE [Concomitant]
  7. BUDESONIDE [Concomitant]
  8. CLAVIX AS [Concomitant]
  9. RAMIPRIL [Concomitant]

REACTIONS (1)
  - CARDIAC DISORDER [None]
